FAERS Safety Report 13820129 (Version 1)
Quarter: 2017Q3

REPORT INFORMATION
  Report Type: Spontaneous
  Country: US (occurrence: US)
  Receive Date: 20170801
  Receipt Date: 20170801
  Transmission Date: 20171127
  Serious: Yes (Other)
  Sender: FDA-Public Use
  Company Number: US-AUROBINDO-AUR-APL-2017-38013

PATIENT
  Age: 43 Year
  Sex: Female

DRUGS (1)
  1. RISPERIDONE 2MG [Suspect]
     Active Substance: RISPERIDONE
     Indication: SCHIZOPHRENIA
     Dosage: 2 MG, DAILY
     Route: 065

REACTIONS (6)
  - Diabetic ketoacidosis [Recovered/Resolved]
  - Muscle rigidity [Recovered/Resolved]
  - Unresponsive to stimuli [Recovered/Resolved]
  - Tachycardia [Recovered/Resolved]
  - Pyrexia [Recovered/Resolved]
  - Neuroleptic malignant syndrome [Recovered/Resolved]
